FAERS Safety Report 9090562 (Version 1)
Quarter: 2013Q1

REPORT INFORMATION
  Report Type: Report from Study
  Country: US (occurrence: US)
  Receive Date: 20130131
  Receipt Date: 20130131
  Transmission Date: 20140127
  Serious: No
  Sender: FDA-Public Use
  Company Number: US-ABBOTT-12P-163-1021763-00

PATIENT
  Age: 46 Year
  Sex: Female
  Weight: 99.88 kg

DRUGS (3)
  1. HUMIRA [Suspect]
     Indication: RHEUMATOID ARTHRITIS
     Dates: start: 20121130
  2. PREDNISONE [Concomitant]
     Indication: RHEUMATOID ARTHRITIS
  3. ZOLOFT [Concomitant]
     Indication: DEPRESSION

REACTIONS (1)
  - Injection site pain [Not Recovered/Not Resolved]
